FAERS Safety Report 6592644-6 (Version None)
Quarter: 2010Q1

REPORT INFORMATION
  Report Type: 
  Country: None (occurrence: None)
  Receive Date: 20100222
  Receipt Date: 20100209
  Transmission Date: 20100710
  Serious: Yes (Other)
  Sender: FDA-Public Use
  Company Number: US-BIOGENIDEC-2009BI040346

PATIENT
  Age: 25 Year
  Sex: Female

DRUGS (3)
  1. TYSABRI [Suspect]
     Indication: MULTIPLE SCLEROSIS
     Route: 042
     Dates: start: 20090608, end: 20091001
  2. VITAMIN TAB [Concomitant]
  3. LYRICA [Concomitant]
     Dates: start: 20100101

REACTIONS (1)
  - ABORTION SPONTANEOUS [None]
